FAERS Safety Report 21911303 (Version 2)
Quarter: 2023Q1

REPORT INFORMATION
  Report Type: Spontaneous
  Country: US (occurrence: US)
  Receive Date: 20230125
  Receipt Date: 20230210
  Transmission Date: 20230418
  Serious: No
  Sender: FDA-Public Use
  Company Number: US-Blueprint Medicines Corporation-SP-US-2023-000152

PATIENT
  Age: 77 Year
  Sex: Male

DRUGS (2)
  1. AYVAKIT [Suspect]
     Active Substance: AVAPRITINIB
     Indication: Systemic mastocytosis
     Route: 048
     Dates: start: 20220610
  2. AYVAKIT [Suspect]
     Active Substance: AVAPRITINIB
     Dosage: ALSO REPORTED AS TAKING ONE TABLET EVERY OTHER DAY AS INSTRUCTED BY MD.
     Route: 065
     Dates: start: 20230201

REACTIONS (2)
  - Platelet count decreased [Unknown]
  - Rash [Unknown]

NARRATIVE: CASE EVENT DATE: 20221117
